FAERS Safety Report 9735848 (Version 2)
Quarter: 2015Q3

REPORT INFORMATION
  Report Type: Spontaneous
  Country: US (occurrence: US)
  Receive Date: 20131206
  Receipt Date: 20150804
  Transmission Date: 20151125
  Serious: No
  Sender: FDA-Public Use
  Company Number: US-GILEAD-2009-0024111

PATIENT
  Age: 55 Year
  Sex: Female
  Weight: 98.88 kg

DRUGS (26)
  1. SIMVASTATIN. [Concomitant]
     Active Substance: SIMVASTATIN
  2. ATROVENT [Concomitant]
     Active Substance: IPRATROPIUM BROMIDE
  3. COREG [Concomitant]
     Active Substance: CARVEDILOL
  4. LORTAB [Concomitant]
     Active Substance: ACETAMINOPHEN\HYDROCODONE BITARTRATE
  5. OXYCODONE [Concomitant]
     Active Substance: OXYCODONE
  6. LANOXIN [Concomitant]
     Active Substance: DIGOXIN
  7. TRAZODONE [Concomitant]
     Active Substance: TRAZODONE HYDROCHLORIDE
  8. TIZANIDINE HCL [Concomitant]
     Active Substance: TIZANIDINE HYDROCHLORIDE
  9. ALBUTEROL. [Concomitant]
     Active Substance: ALBUTEROL
  10. POTASSIUM CHLORIDE. [Concomitant]
     Active Substance: POTASSIUM CHLORIDE
  11. LAXATIVE [Concomitant]
     Active Substance: UNSPECIFIED INGREDIENT
  12. STOOL SOFTENER [Concomitant]
     Active Substance: DOCUSATE CALCIUM
  13. FISH OIL [Concomitant]
     Active Substance: FISH OIL
  14. TYLENOL PM [Concomitant]
     Active Substance: ACETAMINOPHEN\DIPHENHYDRAMINE
  15. SOY [Concomitant]
     Active Substance: SOY EXTRACT
  16. PRINIVIL [Concomitant]
     Active Substance: LISINOPRIL
  17. MULTIVITAMIN [Concomitant]
     Active Substance: VITAMINS
  18. PREVACID [Concomitant]
     Active Substance: LANSOPRAZOLE
  19. LETAIRIS [Suspect]
     Active Substance: AMBRISENTAN
     Indication: PULMONARY ARTERIAL HYPERTENSION
     Route: 048
     Dates: start: 20090819
  20. FUROSEMIDE. [Concomitant]
     Active Substance: FUROSEMIDE
  21. LYRICA [Concomitant]
     Active Substance: PREGABALIN
  22. TRACLEER [Concomitant]
     Active Substance: BOSENTAN
  23. CYMBALTA [Concomitant]
     Active Substance: DULOXETINE HYDROCHLORIDE
  24. METFORMIN HCL [Concomitant]
     Active Substance: METFORMIN HYDROCHLORIDE
  25. CINNAMON. [Concomitant]
     Active Substance: CINNAMON
  26. ASPIRIN. [Concomitant]
     Active Substance: ASPIRIN

REACTIONS (1)
  - Dyspnoea [Unknown]
